FAERS Safety Report 17666510 (Version 1)
Quarter: 2020Q2

REPORT INFORMATION
  Report Type: Spontaneous
  Country: US (occurrence: US)
  Receive Date: 20200414
  Receipt Date: 20200414
  Transmission Date: 20200713
  Serious: No
  Sender: FDA-Public Use
  Company Number: US-CORCEPT THERAPEUTICS INC.-US-2019CRT000467

PATIENT
  Sex: Female
  Weight: 84.81 kg

DRUGS (2)
  1. KORLYM [Suspect]
     Active Substance: MIFEPRISTONE
     Indication: CUSHING^S SYNDROME
     Dosage: 300 MG, QD
     Route: 048
     Dates: start: 201904, end: 201905
  2. KORLYM [Suspect]
     Active Substance: MIFEPRISTONE
     Dosage: 600 MG, QD
     Route: 048
     Dates: start: 201905

REACTIONS (13)
  - Decreased appetite [Unknown]
  - Alopecia [Unknown]
  - Blood potassium decreased [Unknown]
  - Fatigue [Unknown]
  - Pollakiuria [Unknown]
  - Constipation [Unknown]
  - Blood magnesium increased [Not Recovered/Not Resolved]
  - Anxiety [Recovering/Resolving]
  - Blood thyroid stimulating hormone increased [Unknown]
  - Nausea [Recovered/Resolved]
  - Insomnia [Recovered/Resolved]
  - Asthenia [Unknown]
  - Fatigue [Not Recovered/Not Resolved]

NARRATIVE: CASE EVENT DATE: 2019
